FAERS Safety Report 9515736 (Version 1)
Quarter: 2013Q2

REPORT INFORMATION
  Report Type: Spontaneous
  Country: US (occurrence: None)
  Receive Date: 20130505
  Receipt Date: 20130505
  Transmission Date: 20140414
  Serious: Yes (Other)
  Sender: FDA-Public Use
  Company Number: 163-21880-12050695

PATIENT
  Age: 70 Year
  Sex: Male

DRUGS (1)
  1. REVLIMID [Suspect]
     Indication: PLASMA CELL MYELOMA
     Dosage: 25 MG, 1 IN 1 D, PO
     Route: 048
     Dates: start: 200811, end: 2009

REACTIONS (3)
  - Stevens-Johnson syndrome [None]
  - Flushing [None]
  - Muscular weakness [None]
